FAERS Safety Report 4503799-9 (Version None)
Quarter: 2004Q4

REPORT INFORMATION
  Report Type: 
  Country: None (occurrence: None)
  Receive Date: 20041117
  Receipt Date: 20041011
  Transmission Date: 20050328
  Serious: Yes (Other)
  Sender: FDA-Public Use
  Company Number: US-MERCK-0410USA01684

PATIENT
  Age: 65 Year
  Sex: Male

DRUGS (5)
  1. ZETIA [Suspect]
     Indication: BLOOD CHOLESTEROL INCREASED
     Route: 048
     Dates: start: 20040917, end: 20040930
  2. COUMADIN [Concomitant]
     Route: 065
  3. ZOCOR [Concomitant]
     Route: 048
  4. PRINIVIL [Concomitant]
     Route: 065
  5. ALLOPURINOL [Concomitant]
     Route: 065

REACTIONS (2)
  - HAEMORRHAGE [None]
  - INTERNATIONAL NORMALISED RATIO INCREASED [None]
